FAERS Safety Report 7860587-3 (Version None)
Quarter: 2011Q4

REPORT INFORMATION
  Report Type: 
  Country: None (occurrence: None)
  Receive Date: 20111027
  Receipt Date: 20111019
  Transmission Date: 20120403
  Serious: Yes (Other)
  Sender: FDA-Public Use
  Company Number: US-JNJFOC-20111008559

PATIENT
  Sex: Female
  Weight: 113.4 kg

DRUGS (8)
  1. INVEGA [Suspect]
     Route: 048
     Dates: start: 20111012, end: 20111019
  2. INVEGA [Suspect]
     Route: 048
     Dates: start: 20110930, end: 20111011
  3. INVEGA [Suspect]
     Route: 048
     Dates: start: 20110923, end: 20110929
  4. ATIVAN [Concomitant]
     Indication: ANXIETY
     Route: 048
     Dates: start: 20100101
  5. EFFEXOR XR [Concomitant]
     Indication: DEPRESSION
     Dosage: 300 MG CAPSULE
     Route: 048
     Dates: start: 20110201
  6. LAMICTAL [Concomitant]
     Indication: DEPRESSION
     Dosage: 400 MG TABLET
     Route: 048
     Dates: start: 20060101
  7. INVEGA [Suspect]
     Indication: BIPOLAR DISORDER
     Route: 048
     Dates: start: 20110601, end: 20110922
  8. DILAUDID [Concomitant]
     Indication: BACK PAIN
     Route: 048
     Dates: start: 20100101

REACTIONS (7)
  - HALLUCINATION, VISUAL [None]
  - NAUSEA [None]
  - VOMITING [None]
  - HALLUCINATION, AUDITORY [None]
  - DEPRESSION [None]
  - INSOMNIA [None]
  - IMPAIRED GASTRIC EMPTYING [None]
